FAERS Safety Report 8550592-6 (Version None)
Quarter: 2012Q3

REPORT INFORMATION
  Report Type: 
  Country: None (occurrence: None)
  Receive Date: 20120730
  Receipt Date: 20110620
  Transmission Date: 20120928
  Serious: No
  Sender: FDA-Public Use
  Company Number: US-ALLERGAN-1108327US

PATIENT
  Age: 73 Year
  Sex: Female

DRUGS (4)
  1. VISINE EYE DROPS [Concomitant]
     Indication: DRY EYE
     Dosage: UNK
  2. SOOTHE [Concomitant]
     Indication: DRY EYE
  3. LUMIGAN [Suspect]
     Indication: GLAUCOMA
     Dosage: 2 GTT, QHS
     Route: 047
     Dates: start: 20110301
  4. BLINK [Concomitant]
     Indication: DRY EYE

REACTIONS (2)
  - VISION BLURRED [None]
  - EYE IRRITATION [None]
